FAERS Safety Report 8257637-1 (Version None)
Quarter: 2012Q2

REPORT INFORMATION
  Report Type: 
  Country: None (occurrence: None)
  Receive Date: 20120403
  Receipt Date: 20120329
  Transmission Date: 20120825
  Serious: Yes (Hospitalization)
  Sender: FDA-Public Use
  Company Number: GB-MERCK-1204GBR00004

PATIENT
  Age: 65 Year
  Sex: Female

DRUGS (1)
  1. PROPECIA [Suspect]
     Route: 048
     Dates: start: 20120301

REACTIONS (3)
  - MALAISE [None]
  - RENAL FAILURE ACUTE [None]
  - DRUG DISPENSING ERROR [None]
